FAERS Safety Report 7472695-X (Version None)
Quarter: 2011Q2

REPORT INFORMATION
  Report Type: 
  Country: None (occurrence: None)
  Receive Date: 20110502
  Receipt Date: 20110415
  Transmission Date: 20111010
  Serious: Yes (Hospitalization, Other)
  Sender: FDA-Public Use
  Company Number: 2010SP062391

PATIENT
  Age: 28 Year
  Sex: Female
  Weight: 58.9676 kg

DRUGS (4)
  1. ACETAMINOPHEN [Concomitant]
  2. NUVARING [Suspect]
     Indication: CONTRACEPTION
     Dates: start: 20000101, end: 20000101
  3. NUVARING [Suspect]
     Indication: CONTRACEPTION
     Dates: start: 20060208, end: 20060209
  4. NUVARING [Suspect]
     Indication: CONTRACEPTION
     Dates: start: 20081202, end: 20090107

REACTIONS (28)
  - UTERINE LEIOMYOMA [None]
  - SYNCOPE [None]
  - POSTPARTUM DEPRESSION [None]
  - ABORTION SPONTANEOUS [None]
  - INJURY [None]
  - DYSPAREUNIA [None]
  - FALL [None]
  - PAIN [None]
  - HAEMORRHOIDS [None]
  - VERTIGO [None]
  - PREGNANCY [None]
  - HYPOGLYCAEMIA [None]
  - PELVIC PAIN [None]
  - MENORRHAGIA [None]
  - COORDINATION ABNORMAL [None]
  - OVARIAN CYST [None]
  - HEADACHE [None]
  - TREMOR [None]
  - ROAD TRAFFIC ACCIDENT [None]
  - DYSARTHRIA [None]
  - CERVICAL DYSPLASIA [None]
  - LOSS OF CONSCIOUSNESS [None]
  - APHASIA [None]
  - DYSKINESIA [None]
  - MEDICAL DEVICE DISCOMFORT [None]
  - OVARIAN FIBROMA [None]
  - ASTHENIA [None]
  - DIZZINESS [None]
